FAERS Safety Report 8518595-5 (Version None)
Quarter: 2012Q3

REPORT INFORMATION
  Report Type: 
  Country: None (occurrence: None)
  Receive Date: 20120718
  Receipt Date: 20110602
  Transmission Date: 20120928
  Serious: No
  Sender: FDA-Public Use
  Company Number: US-BRISTOL-MYERS SQUIBB COMPANY-15083876

PATIENT
  Age: 57 Year
  Sex: Female

DRUGS (15)
  1. ACIPHEX [Concomitant]
  2. VALIUM [Concomitant]
     Indication: NERVOUSNESS
  3. COUMADIN [Suspect]
     Dosage: TAKES TWO 5MG TABS
     Dates: start: 20060101
  4. LUTEIN [Concomitant]
  5. ALLEGRA [Concomitant]
  6. BIOTIN [Concomitant]
  7. LORTAB [Concomitant]
     Indication: PAIN
  8. ALTACE [Concomitant]
     Indication: BLOOD PRESSURE
  9. LASIX [Concomitant]
     Indication: BLOOD PRESSURE
  10. TYLENOL [Concomitant]
  11. NORVASC [Concomitant]
     Indication: BLOOD PRESSURE
  12. CONJUGATED ESTROGENS [Concomitant]
  13. POTASSIUM CHLORIDE [Concomitant]
  14. LOVENOX [Concomitant]
  15. ANTIBIOTICS [Suspect]
     Indication: UPPER RESPIRATORY TRACT INFECTION

REACTIONS (6)
  - ALOPECIA [None]
  - CONTUSION [None]
  - NAIL DISORDER [None]
  - SKIN ATROPHY [None]
  - DIARRHOEA [None]
  - UPPER RESPIRATORY TRACT INFECTION [None]
